FAERS Safety Report 15066871 (Version 1)
Quarter: 2018Q2

REPORT INFORMATION
  Report Type: Spontaneous
  Country: US (occurrence: US)
  Receive Date: 20180606
  Receipt Date: 20180606
  Transmission Date: 20180711
  Serious: Yes (Hospitalization)
  Sender: FDA-Public Use
  Company Number: None

PATIENT
  Sex: Female

DRUGS (1)
  1. HARVONI [Suspect]
     Active Substance: LEDIPASVIR\SOFOSBUVIR
     Indication: HEPATITIS C
     Dosage: 90MG/400MG DAILY PO
     Route: 048
     Dates: start: 20180511

REACTIONS (3)
  - Haemorrhage [None]
  - Pain [None]
  - Surgery [None]

NARRATIVE: CASE EVENT DATE: 20180526
